FAERS Safety Report 22350441 (Version 1)
Quarter: 2023Q2

REPORT INFORMATION
  Report Type: Spontaneous
  Country: US (occurrence: None)
  Receive Date: 20230520
  Receipt Date: 20230520
  Transmission Date: 20230721
  Serious: Yes (Other)
  Sender: FDA-Public Use
  Company Number: None

PATIENT
  Age: 74 Year
  Sex: Male
  Weight: 78.3 kg

DRUGS (7)
  1. LEXISCAN [Suspect]
     Active Substance: REGADENOSON
     Dates: start: 20230514, end: 20230514
  2. METOPROLOL [Concomitant]
     Active Substance: METOPROLOL
  3. CIALIS [Concomitant]
     Active Substance: TADALAFIL
  4. ASPIRIN [Concomitant]
     Active Substance: ASPIRIN
  5. uroxatrol [Concomitant]
  6. VITAMINS [Concomitant]
     Active Substance: VITAMINS
  7. vitaminD [Concomitant]

REACTIONS (1)
  - Urinary retention [None]

NARRATIVE: CASE EVENT DATE: 20230514
